FAERS Safety Report 4947187-X (Version None)
Quarter: 2006Q1

REPORT INFORMATION
  Report Type: 
  Country: None (occurrence: None)
  Receive Date: 20060313
  Receipt Date: 20060227
  Transmission Date: 20060701
  Serious: Yes (Hospitalization, Other)
  Sender: FDA-Public Use
  Company Number: 2006028760

PATIENT
  Age: 74 Year
  Sex: Female
  Weight: 70.3075 kg

DRUGS (12)
  1. LIPITOR [Suspect]
     Indication: BLOOD CHOLESTEROL INCREASED
     Dosage: 10 MG (10 MG, 1 IN 1 D) ORAL
     Route: 048
  2. MORPHINE [Suspect]
     Indication: TRIPLE VESSEL BYPASS GRAFT
  3. PREVACID [Concomitant]
  4. HYOSCYAMINE [Concomitant]
  5. SYNTHROID [Concomitant]
  6. CLARITIN [Concomitant]
  7. ASPIRIN [Concomitant]
  8. NITROQUICK (GLYCERYL TRINITRATE) [Concomitant]
  9. MECLIZINE [Concomitant]
  10. NASONEX [Concomitant]
  11. OPTIVAR (AZELASTINE HYDROCHLORIDE) [Concomitant]
  12. ZITHROMAX [Concomitant]

REACTIONS (14)
  - ABASIA [None]
  - BALANCE DISORDER [None]
  - BLOOD PRESSURE INADEQUATELY CONTROLLED [None]
  - CARDIAC FAILURE [None]
  - CEREBROVASCULAR ACCIDENT [None]
  - DIZZINESS [None]
  - DRUG INEFFECTIVE [None]
  - FALL [None]
  - MUSCLE SPASMS [None]
  - POST PROCEDURAL COMPLICATION [None]
  - RASH MACULAR [None]
  - RASH PRURITIC [None]
  - SENSATION OF HEAVINESS [None]
  - VASCULAR BYPASS GRAFT [None]
